FAERS Safety Report 6481840-4 (Version None)
Quarter: 2009Q4

REPORT INFORMATION
  Report Type: 
  Country: None (occurrence: None)
  Receive Date: 20091208
  Receipt Date: 20090824
  Transmission Date: 20100525
  Serious: No
  Sender: FDA-Public Use
  Company Number: US-AMGEN-KDL340473

PATIENT
  Sex: Female
  Weight: 64.5 kg

DRUGS (6)
  1. ENBREL [Suspect]
     Indication: RHEUMATOID ARTHRITIS
     Route: 058
     Dates: start: 20080731
  2. METHOTREXATE [Concomitant]
  3. SULFASALAZINE [Concomitant]
  4. ARAVA [Concomitant]
  5. PLAQUENIL [Concomitant]
  6. UNSPECIFIED MEDICATION [Concomitant]

REACTIONS (5)
  - INJECTION SITE ERYTHEMA [None]
  - INJECTION SITE HAEMATOMA [None]
  - INJECTION SITE MASS [None]
  - INJECTION SITE PRURITUS [None]
  - INJECTION SITE REACTION [None]
